FAERS Safety Report 8859393 (Version 1)
Quarter: 2012Q4

REPORT INFORMATION
  Report Type: 
  Country: US (occurrence: US)
  Receive Date: 20121024
  Receipt Date: 20121024
  Transmission Date: 20130627
  Serious: No
  Sender: FDA-Public Use
  Company Number: US-009507513-1210USA010755

PATIENT
  Sex: Male

DRUGS (1)
  1. PROSCAR [Suspect]

REACTIONS (2)
  - Lid sulcus deepened [Unknown]
  - Collagen disorder [Unknown]
